FAERS Safety Report 4502234-4 (Version None)
Quarter: 2004Q4

REPORT INFORMATION
  Report Type: 
  Country: None (occurrence: None)
  Receive Date: 20041116
  Receipt Date: 20041104
  Transmission Date: 20050328
  Serious: Yes (Hospitalization)
  Sender: FDA-Public Use
  Company Number: DE-JNJFOC-20041101683

PATIENT
  Sex: Male

DRUGS (3)
  1. TRAMAL TROPEN [Suspect]
     Indication: PAIN
     Route: 049
  2. TRAMAL TROPEN [Suspect]
     Route: 049
  3. OXAZEPAM [Concomitant]
     Indication: INSOMNIA
     Dosage: 10 TO 20MG.
     Route: 065

REACTIONS (3)
  - BRONCHITIS [None]
  - HYPERSENSITIVITY [None]
  - SNEEZING [None]
